FAERS Safety Report 9660847 (Version 1)
Quarter: 2013Q4

REPORT INFORMATION
  Report Type: Spontaneous
  Country: US (occurrence: US)
  Receive Date: 20131031
  Receipt Date: 20131031
  Transmission Date: 20140711
  Serious: No
  Sender: FDA-Public Use
  Company Number: US-ENDO PHARMACEUTICALS INC.-HCDA20120117

PATIENT
  Age: 38 Year
  Sex: Female

DRUGS (2)
  1. HYDROCODONE/ACETAMINOPHEN 10MG/325MG [Suspect]
     Indication: PAIN
     Dosage: 10MG/325MG
     Route: 048
     Dates: start: 20121217
  2. VICODIN [Concomitant]
     Indication: PAIN
     Route: 048

REACTIONS (1)
  - Drug ineffective [Unknown]
